FAERS Safety Report 13749875 (Version 1)
Quarter: 2017Q3

REPORT INFORMATION
  Report Type: Spontaneous
  Country: US (occurrence: US)
  Receive Date: 20170713
  Receipt Date: 20170713
  Transmission Date: 20171127
  Serious: No
  Sender: FDA-Public Use
  Company Number: US-ASTELLAS-2016US041883

PATIENT
  Age: 87 Year
  Sex: Male

DRUGS (2)
  1. MYRBETRIQ [Suspect]
     Active Substance: MIRABEGRON
     Indication: POLLAKIURIA
     Route: 048
     Dates: start: 20160819, end: 20160902
  2. MYRBETRIQ [Suspect]
     Active Substance: MIRABEGRON
     Route: 048
     Dates: start: 20160903

REACTIONS (2)
  - Dysuria [Recovering/Resolving]
  - Insomnia [Recovered/Resolved]

NARRATIVE: CASE EVENT DATE: 20160819
